FAERS Safety Report 9826902 (Version 1)
Quarter: 2014Q1

REPORT INFORMATION
  Report Type: Spontaneous
  Country: US (occurrence: US)
  Receive Date: 20140117
  Receipt Date: 20140117
  Transmission Date: 20141002
  Serious: No
  Sender: FDA-Public Use
  Company Number: US-GLAXOSMITHKLINE-A1015132A

PATIENT
  Age: 40 Year
  Sex: Male

DRUGS (2)
  1. PROMACTA [Suspect]
     Indication: PLATELET COUNT DECREASED
     Dosage: 50MG TWICE PER DAY
     Route: 048
     Dates: start: 20130225
  2. NO CONCURRENT MEDICATION [Concomitant]

REACTIONS (2)
  - Overdose [Not Recovered/Not Resolved]
  - Fatigue [Not Recovered/Not Resolved]
